FAERS Safety Report 10994055 (Version 2)
Quarter: 2015Q2

REPORT INFORMATION
  Report Type: Spontaneous
  Country: US (occurrence: US)
  Receive Date: 20150407
  Receipt Date: 20150428
  Transmission Date: 20150821
  Serious: Yes (Hospitalization)
  Sender: FDA-Public Use
  Company Number: US-PFIZER INC-2015115302

PATIENT
  Age: 76 Year
  Sex: Female
  Weight: 84 kg

DRUGS (1)
  1. SUTENT [Suspect]
     Active Substance: SUNITINIB MALATE
     Indication: NEOPLASM MALIGNANT
     Dosage: 12.5 MG, UNK
     Dates: start: 20141030

REACTIONS (3)
  - Food interaction [Not Recovered/Not Resolved]
  - Sluggishness [Not Recovered/Not Resolved]
  - Swollen tongue [Not Recovered/Not Resolved]
